FAERS Safety Report 15596842 (Version 2)
Quarter: 2018Q4

REPORT INFORMATION
  Report Type: Spontaneous
  Country: US (occurrence: US)
  Receive Date: 20181108
  Receipt Date: 20181120
  Transmission Date: 20190205
  Serious: No
  Sender: FDA-Public Use
  Company Number: US-AMGEN-USASP2018156389

PATIENT
  Age: 10 Year
  Sex: Male

DRUGS (2)
  1. ENBREL [Suspect]
     Active Substance: ETANERCEPT
     Indication: PSORIASIS
     Dosage: 34 MG, QWK
     Route: 058
     Dates: start: 20180208
  2. ENBREL [Suspect]
     Active Substance: ETANERCEPT
     Dosage: 34 MG, QWK
     Route: 058

REACTIONS (2)
  - Skin plaque [Not Recovered/Not Resolved]
  - Product dose omission [Unknown]

NARRATIVE: CASE EVENT DATE: 2018
